FAERS Safety Report 5304970-9 (Version None)
Quarter: 2007Q2

REPORT INFORMATION
  Report Type: 
  Country: None (occurrence: None)
  Receive Date: 20070423
  Receipt Date: 20070412
  Transmission Date: 20071010
  Serious: Yes (Other)
  Sender: FDA-Public Use
  Company Number: JP-PFIZER INC-2007027740

PATIENT
  Age: 40 Year
  Sex: Male

DRUGS (3)
  1. HALCION [Suspect]
     Dosage: TEXT:UNKNOWN
     Route: 048
  2. ATARAX [Suspect]
     Dosage: TEXT:UNKNOWN
     Route: 048
  3. ALL OTHER THERAPEUTIC PRODUCTS [Concomitant]

REACTIONS (5)
  - MULTIPLE DRUG OVERDOSE [None]
  - OVERDOSE [None]
  - SOMNOLENCE [None]
  - SUICIDAL IDEATION [None]
  - SUICIDE ATTEMPT [None]
